FAERS Safety Report 16523692 (Version 3)
Quarter: 2019Q3

REPORT INFORMATION
  Report Type: Spontaneous
  Country: ES (occurrence: ES)
  Receive Date: 20190702
  Receipt Date: 20190708
  Transmission Date: 20191004
  Serious: No
  Sender: FDA-Public Use
  Company Number: ES-009507513-1906ESP010276

PATIENT
  Age: 5 Year
  Sex: Male

DRUGS (6)
  1. ELOSULFASE ALFA [Concomitant]
     Active Substance: ELOSULFASE ALFA
     Dosage: 0.2 ML/MIN ADMINISTERED IN AN 8 HOUR LONG INFUSION
  2. METHYLPREDNISOLONE. [Suspect]
     Active Substance: METHYLPREDNISOLONE
     Indication: URTICARIA
     Dosage: 10 MILLIGRAM (1 MG/KG)
  3. THERAPY UNSPECIFIED [Suspect]
     Active Substance: UNSPECIFIED INGREDIENT
     Dosage: UNK
  4. ACETAMINOPHEN. [Concomitant]
     Active Substance: ACETAMINOPHEN
     Dosage: 0.15 MG/KG
  5. DEXCHLORPHENIRAMINE MALEATE. [Suspect]
     Active Substance: DEXCHLORPHENIRAMINE MALEATE
     Indication: URTICARIA
     Dosage: 0.15 MG/KG
  6. DESLORATADINE. [Suspect]
     Active Substance: DESLORATADINE
     Indication: URTICARIA
     Dosage: 1.25 MG
     Route: 048

REACTIONS (1)
  - Product use in unapproved indication [Unknown]
